FAERS Safety Report 16805898 (Version 1)
Quarter: 2019Q4

REPORT INFORMATION
  Report Type: Spontaneous
  Country: US (occurrence: US)
  Receive Date: 20190913
  Receipt Date: 20190913
  Transmission Date: 20200122
  Serious: Yes (Life-Threatening, Hospitalization, Disabling)
  Sender: FDA-Public Use
  Company Number: None

PATIENT
  Age: 64 Year
  Sex: Male
  Weight: 112.5 kg

DRUGS (1)
  1. ROSUVASTATIN 40MG [Suspect]
     Active Substance: ROSUVASTATIN
     Indication: BLOOD CHOLESTEROL INCREASED
     Route: 048
     Dates: start: 20190304, end: 20190910

REACTIONS (4)
  - Rhabdomyolysis [None]
  - Acute kidney injury [None]
  - Dehydration [None]
  - Haemodialysis [None]

NARRATIVE: CASE EVENT DATE: 20190425
